FAERS Safety Report 8577307-X (Version None)
Quarter: 2012Q3

REPORT INFORMATION
  Report Type: 
  Country: None (occurrence: None)
  Receive Date: 20120807
  Receipt Date: 20120726
  Transmission Date: 20120928
  Serious: Yes (Other)
  Sender: FDA-Public Use
  Company Number: US-ELI_LILLY_AND_COMPANY-US201207008510

PATIENT
  Sex: Female

DRUGS (5)
  1. HUMALOG [Suspect]
     Indication: DIABETES MELLITUS
     Dosage: UNK, PRN
     Dates: end: 20120701
  2. NOVOLOG [Concomitant]
     Dosage: 45 U, TID
  3. OXYGEN [Concomitant]
  4. HUMULIN R [Suspect]
     Indication: DIABETES MELLITUS
     Dosage: 400 U, TID
     Dates: start: 20120701
  5. NOVOLOG [Concomitant]
     Dosage: UNK, PRN

REACTIONS (4)
  - CARDIAC FAILURE CONGESTIVE [None]
  - BLOOD CHOLESTEROL INCREASED [None]
  - PANCREATIC DISORDER [None]
  - INCORRECT DOSE ADMINISTERED [None]
